FAERS Safety Report 13381832 (Version 1)
Quarter: 2017Q1

REPORT INFORMATION
  Report Type: Spontaneous
  Country: US (occurrence: US)
  Receive Date: 20170329
  Receipt Date: 20170329
  Transmission Date: 20170429
  Serious: Yes (Hospitalization)
  Sender: FDA-Public Use
  Company Number: None

PATIENT
  Age: 18 Day
  Sex: Female
  Weight: 3.8 kg

DRUGS (1)
  1. MICAFUNGIN [Suspect]
     Active Substance: MICAFUNGIN
     Indication: ANTIFUNGAL PROPHYLAXIS
     Route: 042
     Dates: start: 20170224, end: 20170302

REACTIONS (3)
  - Rash [None]
  - Pallor [None]
  - Rash maculo-papular [None]

NARRATIVE: CASE EVENT DATE: 20170226
